FAERS Safety Report 17826709 (Version 1)
Quarter: 2020Q2

REPORT INFORMATION
  Report Type: Spontaneous
  Country: IT (occurrence: IT)
  Receive Date: 20200527
  Receipt Date: 20200527
  Transmission Date: 20200714
  Serious: Yes (Other)
  Sender: FDA-Public Use
  Company Number: IT-SUN PHARMACEUTICAL INDUSTRIES LTD-2020RR-248284

PATIENT
  Age: 73 Year
  Sex: Male

DRUGS (4)
  1. 5 FLUORO URACIL [Suspect]
     Active Substance: FLUOROURACIL
     Indication: ADENOCARCINOMA GASTRIC
     Dosage: CYCLIC (8 CYCLES) ()
     Route: 065
  2. OXALIPLATIN. [Suspect]
     Active Substance: OXALIPLATIN
     Indication: ADENOCARCINOMA GASTRIC
     Dosage: CYCLIC (8 CYCLES) ()
     Route: 065
  3. DOCETAXEL. [Suspect]
     Active Substance: DOCETAXEL
     Indication: MIXED ADENONEUROENDOCRINE CARCINOMA
     Dosage: CYCLIC (8 CYCLES) ()
     Route: 065
  4. LEUCOVORIN. [Suspect]
     Active Substance: LEUCOVORIN
     Indication: MIXED ADENONEUROENDOCRINE CARCINOMA
     Dosage: CYCLIC (8 CYCLES) ()
     Route: 065

REACTIONS (5)
  - Erosive oesophagitis [Unknown]
  - Transdifferentiation of neoplasm [Recovered/Resolved]
  - Fatigue [Recovered/Resolved]
  - Diarrhoea [Recovered/Resolved]
  - Product use in unapproved indication [Unknown]
